FAERS Safety Report 10855284 (Version 1)
Quarter: 2015Q1

REPORT INFORMATION
  Report Type: Spontaneous
  Country: US (occurrence: US)
  Receive Date: 20150223
  Receipt Date: 20150223
  Transmission Date: 20150721
  Serious: Yes (Hospitalization, Other)
  Sender: FDA-Public Use
  Company Number: US-SHIRE-US201501339

PATIENT
  Age: 71 Year
  Sex: Female
  Weight: 47.17 kg

DRUGS (4)
  1. PENTASA [Suspect]
     Active Substance: MESALAMINE
     Dosage: 1000 MG (TWO 500 MG CAPUSLES), 1X/DAY:QD
     Route: 048
     Dates: start: 201502
  2. OTHER VITAMIN PRODUCTS, COMBINATIONS [Concomitant]
     Indication: PRODUCT USED FOR UNKNOWN INDICATION
     Dosage: UNK, UNKNOWN
     Route: 065
  3. VITAMIN D                          /00107901/ [Concomitant]
     Active Substance: ERGOCALCIFEROL
     Indication: PRODUCT USED FOR UNKNOWN INDICATION
     Dosage: UNK, UNKNOWN
     Route: 065
  4. PENTASA [Suspect]
     Active Substance: MESALAMINE
     Indication: CROHN^S DISEASE
     Dosage: 3000 MG (SIX 500 MG CAPSULES), 1X/DAY:QD
     Route: 048
     Dates: start: 201407, end: 201412

REACTIONS (9)
  - Pneumonia [Recovered/Resolved]
  - Anxiety [Not Recovered/Not Resolved]
  - Palpitations [Not Recovered/Not Resolved]
  - Abnormal loss of weight [Not Recovered/Not Resolved]
  - Drug dose omission [Recovered/Resolved]
  - Product use issue [Not Recovered/Not Resolved]
  - Influenza [Recovered/Resolved]
  - Gastrointestinal disorder [Recovered/Resolved]
  - Hernia [Recovered/Resolved]

NARRATIVE: CASE EVENT DATE: 2014
